FAERS Safety Report 6306744-9 (Version None)
Quarter: 2009Q3

REPORT INFORMATION
  Report Type: 
  Country: None (occurrence: None)
  Receive Date: 20090810
  Receipt Date: 20090805
  Transmission Date: 20100115
  Serious: Yes (Death, Life-Threatening, Hospitalization, Other)
  Sender: FDA-Public Use
  Company Number: ENTC2009-0160

PATIENT
  Age: 81 Year
  Sex: Male

DRUGS (9)
  1. STALEVO 100 [Suspect]
     Indication: PARKINSON'S DISEASE
  2. SINEMET [Suspect]
     Indication: PARKINSON'S DISEASE
     Dosage: 100MG / 10 MG, BID
  3. PREVISCAN [Suspect]
     Dosage: 10 MG DAILY
  4. SOTALOL HYDROCHLORIDE [Suspect]
     Dosage: 40 MG DAILY
  5. STABLON [Suspect]
     Dosage: 12.5 MG DAILY
  6. LERCANIDIPINE [Suspect]
     Dosage: 10 MG DAILY
  7. LASIX [Suspect]
  8. HUMAN-PPSB [Suspect]
     Dosage: 2000 IU
     Dates: start: 20090316
  9. VITA K1 [Suspect]
     Dosage: 10 MG
     Dates: start: 20090316

REACTIONS (9)
  - BRONCHIAL OBSTRUCTION [None]
  - CEREBELLAR HAEMATOMA [None]
  - CONFUSIONAL STATE [None]
  - DISORIENTATION [None]
  - FALL [None]
  - INTERNATIONAL NORMALISED RATIO INCREASED [None]
  - ISCHAEMIC STROKE [None]
  - LUNG DISORDER [None]
  - NEUROLOGICAL DECOMPENSATION [None]
